FAERS Safety Report 23922665 (Version 1)
Quarter: 2024Q2

REPORT INFORMATION
  Report Type: Other
  Country: LB (occurrence: None)
  Receive Date: 20240531
  Receipt Date: 20240531
  Transmission Date: 20240715
  Serious: Yes (Other)
  Sender: FDA-Public Use
  Company Number: LB-ROCHE-3569404

PATIENT
  Age: 45 Year
  Sex: Female
  Weight: 53 kg

DRUGS (3)
  1. PERJETA [Suspect]
     Active Substance: PERTUZUMAB
     Indication: Breast cancer
     Route: 042
     Dates: start: 202205, end: 202402
  2. KADCYLA [Suspect]
     Active Substance: ADO-TRASTUZUMAB EMTANSINE
     Indication: Breast cancer metastatic
     Route: 042
     Dates: start: 20240306, end: 20240508
  3. HERCEPTIN [Concomitant]
     Active Substance: TRASTUZUMAB
     Indication: Breast cancer
     Route: 041
     Dates: start: 202205, end: 202402

REACTIONS (1)
  - Metastases to lung [Not Recovered/Not Resolved]

NARRATIVE: CASE EVENT DATE: 20240522
